FAERS Safety Report 19359392 (Version 4)
Quarter: 2021Q4

REPORT INFORMATION
  Report Type: Spontaneous
  Country: DE (occurrence: DE)
  Receive Date: 20210601
  Receipt Date: 20211009
  Transmission Date: 20220303
  Serious: Yes (Death, Hospitalization, Other)
  Sender: FDA-Public Use
  Company Number: DE-ALXN-A202106216

PATIENT
  Age: 79 Year
  Sex: Male
  Weight: 173 kg

DRUGS (4)
  1. SOLIRIS [Suspect]
     Active Substance: ECULIZUMAB
     Indication: Myasthenia gravis
     Dosage: 900 MG, QW (FOR FOUR WEEKS)
     Route: 065
     Dates: start: 20200805
  2. SOLIRIS [Suspect]
     Active Substance: ECULIZUMAB
     Dosage: 1200 MG, Q2W, 24 TIMES
     Route: 065
     Dates: start: 20200903, end: 20210526
  3. PREDNISOLONE [Concomitant]
     Active Substance: PREDNISOLONE
     Indication: Osteomyelitis
     Dosage: 60 MG, UNK
     Route: 065
     Dates: start: 20200527
  4. AZATHIOPRINE [Concomitant]
     Active Substance: AZATHIOPRINE
     Indication: Osteomyelitis
     Dosage: 75 MG, BID
     Route: 065
     Dates: start: 20200415

REACTIONS (2)
  - Myasthenia gravis [Fatal]
  - Osteomyelitis [Fatal]

NARRATIVE: CASE EVENT DATE: 20210601
